FAERS Safety Report 4303086-8 (Version None)
Quarter: 2004Q1

REPORT INFORMATION
  Report Type: 
  Country: None (occurrence: None)
  Receive Date: 20040223
  Receipt Date: 20040210
  Transmission Date: 20041129
  Serious: Yes (Hospitalization, Disabling, Other)
  Sender: FDA-Public Use
  Company Number: 001-0945-M0200657

PATIENT
  Age: 44 Year
  Sex: Female
  Weight: 54.4316 kg

DRUGS (29)
  1. NEURONTIN [Suspect]
     Indication: BIPOLAR DISORDER
     Dosage: 1800 MG (DAILY), ORAL
     Route: 048
     Dates: start: 19990512, end: 20020401
  2. LAMOTRIGINE [Concomitant]
  3. LITHIUM CARBONATE [Concomitant]
  4. CLONAZEPAM [Concomitant]
  5. METHYLPHENIDATE HCL [Concomitant]
  6. LEVOTHYROXINE SODIUM [Concomitant]
  7. LIOTHYRONINE SODIUM [Concomitant]
  8. SERTRALINE HCL [Concomitant]
  9. PILOCARPINE HYDROCHLORIDE (PILOCARPINE HYDROCHLORIDE) [Concomitant]
  10. METOPROLOL SUCCINATE [Concomitant]
  11. LANSOPRAZOLE [Concomitant]
  12. HYOSCYAMINE SULFATE AND PHENOBARBITAL [Concomitant]
  13. DILTIAZEM HYDROCHLORIDE [Concomitant]
  14. BUPROPION HYDROCHLORIDE [Concomitant]
  15. CELEBREX [Concomitant]
  16. QUETIAPINE FUMARATE (QUETIAPINE FUMARATE) [Concomitant]
  17. METOPROLOL TARTRATE [Concomitant]
  18. CITALOPRAM HYDROBROMIDE (CITALOPRAM HYDROBROMIDE) [Concomitant]
  19. HYOSCYAMINE SULFATE AND PHENOBARBITAL [Concomitant]
  20. OLANZAPINE [Concomitant]
  21. OMEPRAZOLE [Concomitant]
  22. NASAL PREPARATIONS [Concomitant]
  23. NEFAZODONE HCL [Concomitant]
  24. TOTOLIN (GUAIFENESIN, PHENYLPROPANOLAMINE HYDROCHLORIDE) [Concomitant]
  25. MECLOZINE (MECLOZINE) [Concomitant]
  26. FLUTICASONE PROPIONATE [Concomitant]
  27. TRIMETHOBENZAMIDE HYDROCHLORIDE (TRIMETHOBENZAMIDE HYDROCHLORIDE) [Concomitant]
  28. RESPAIRE-SR-120 (GUAIFENESIN, PSEUDOEPHEDRINE HYDROCHLORIDE) [Concomitant]
  29. RISPERIDONE [Concomitant]

REACTIONS (56)
  - ABNORMAL SENSATION IN EYE [None]
  - ACTIVITIES OF DAILY LIVING IMPAIRED [None]
  - ACUTE SINUSITIS [None]
  - ANGER [None]
  - ANTINUCLEAR ANTIBODY POSITIVE [None]
  - ANXIETY [None]
  - APHASIA [None]
  - ARTHRITIS [None]
  - ATAXIA [None]
  - BACK PAIN [None]
  - BIOPSY TONGUE ABNORMAL [None]
  - BLEPHARITIS [None]
  - BLEPHAROSPASM [None]
  - BLOOD GLUCOSE INCREASED [None]
  - BRAIN DAMAGE [None]
  - BRONCHOSPASM [None]
  - BRUXISM [None]
  - BURNING SENSATION [None]
  - CHEST PAIN [None]
  - DEPRESSION [None]
  - DIPLOPIA [None]
  - DIZZINESS [None]
  - DRUG WITHDRAWAL SYNDROME [None]
  - EAR PAIN [None]
  - EYE IRRITATION [None]
  - EYELID PTOSIS [None]
  - FACIAL BONES FRACTURE [None]
  - FALL [None]
  - FEELING JITTERY [None]
  - HAEMORRHAGE [None]
  - HALO VISION [None]
  - HEAD INJURY [None]
  - HORDEOLUM [None]
  - HYPERSENSITIVITY [None]
  - INSOMNIA [None]
  - INTENTIONAL SELF-INJURY [None]
  - INTERVERTEBRAL DISC DEGENERATION [None]
  - IRRITABILITY [None]
  - JOINT SPRAIN [None]
  - KERATOCONJUNCTIVITIS SICCA [None]
  - LOSS OF CONSCIOUSNESS [None]
  - NECK INJURY [None]
  - NYSTAGMUS [None]
  - PAIN EXACERBATED [None]
  - PCO2 DECREASED [None]
  - PHOTOPHOBIA [None]
  - RESTLESS LEGS SYNDROME [None]
  - ROAD TRAFFIC ACCIDENT [None]
  - SENSATION OF PRESSURE [None]
  - SENSORY DISTURBANCE [None]
  - SPEECH DISORDER [None]
  - SUICIDAL IDEATION [None]
  - SWOLLEN TONGUE [None]
  - VESTIBULAR NEURONITIS [None]
  - VIRAL INFECTION [None]
  - WHITE BLOOD CELL COUNT ABNORMAL [None]
